FAERS Safety Report 21628039 (Version 1)
Quarter: 2022Q4

REPORT INFORMATION
  Report Type: Spontaneous
  Country: GB (occurrence: GB)
  Receive Date: 20221122
  Receipt Date: 20221122
  Transmission Date: 20230113
  Serious: Yes (Death, Hospitalization, Other)
  Sender: FDA-Public Use
  Company Number: None

PATIENT
  Age: 59 Year
  Sex: Male
  Weight: 62 kg

DRUGS (36)
  1. RISPERDAL [Suspect]
     Active Substance: RISPERIDONE
     Indication: Schizophrenia
     Route: 048
  2. RISPERDAL [Suspect]
     Active Substance: RISPERIDONE
     Route: 048
  3. RISPERDAL [Suspect]
     Active Substance: RISPERIDONE
     Dosage: 2 TABLETS DAILY
     Route: 048
  4. HALDOL [Suspect]
     Active Substance: HALOPERIDOL
     Indication: Schizophrenia
     Dosage: 5 MILLIGRAM, BID
     Route: 048
  5. ARIPIPRAZOLE [Suspect]
     Active Substance: ARIPIPRAZOLE
     Indication: Schizophrenia
     Dosage: 5 MILLIGRAM;
     Route: 048
  6. CHLORPROMAZINE [Suspect]
     Active Substance: CHLORPROMAZINE
     Indication: Schizophrenia
     Dosage: 75 MILLIGRAM;
     Route: 048
  7. ZUCLOPENTHIXOL HYDROCHLORIDE [Suspect]
     Active Substance: ZUCLOPENTHIXOL HYDROCHLORIDE
     Indication: Product used for unknown indication
     Dosage: 300 MG, WEEKLY (1/W)
     Route: 030
     Dates: start: 20091009
  8. CLOZARIL [Suspect]
     Active Substance: CLOZAPINE
     Indication: Schizophrenia
     Route: 048
     Dates: start: 20201207
  9. DOCETAXEL [Suspect]
     Active Substance: DOCETAXEL
     Indication: Breast cancer metastatic
     Dosage: 110 MG, Q3W (CUMULATIVE DOSE: 324.98)
     Route: 065
     Dates: start: 20150930, end: 20151021
  10. DOCETAXEL [Suspect]
     Active Substance: DOCETAXEL
     Indication: Breast cancer metastatic
     Dosage: 220 MILLIGRAM;
     Route: 065
     Dates: start: 20151222
  11. LITHIUM [Suspect]
     Active Substance: LITHIUM
     Indication: Product used for unknown indication
     Dosage: 6 MILLIGRAM, QD
     Route: 048
  12. LORAZEPAM [Suspect]
     Active Substance: LORAZEPAM
     Indication: Schizophrenia
     Route: 048
  13. OLANZAPINE [Suspect]
     Active Substance: OLANZAPINE
     Indication: Schizophrenia
     Route: 065
     Dates: start: 20060704
  14. OLANZAPINE [Suspect]
     Active Substance: OLANZAPINE
     Indication: Product used for unknown indication
     Dosage: 10 MILLIGRAM;
     Route: 048
  15. PACLITAXEL [Suspect]
     Active Substance: PACLITAXEL
     Indication: Breast cancer metastatic
     Dosage: 150 MG, QW (CUMULATIVE DOSE: 428.57 MG
     Route: 065
     Dates: start: 20151111, end: 20151222
  16. PACLITAXEL [Suspect]
     Active Substance: PACLITAXEL
     Indication: Breast cancer metastatic
     Dosage: 120 MG, QW (CUMULATIVE DOSE: 377.142)
     Route: 065
     Dates: start: 20151223, end: 20151223
  17. PERTUZUMAB [Suspect]
     Active Substance: PERTUZUMAB
     Indication: Breast cancer metastatic
     Dosage: 840 MG, Q3W (CUMULATIVE DOSE: 2481.6667 MG)
     Route: 065
     Dates: start: 20150930
  18. PERTUZUMAB [Suspect]
     Active Substance: PERTUZUMAB
     Indication: Breast cancer metastatic
     Dosage: 2 U, WEEKLY (1/W)
     Route: 065
  19. TRASTUZUMAB [Suspect]
     Active Substance: TRASTUZUMAB
     Indication: Breast cancer metastatic
     Dosage: 1218 MILLIGRAM, QWK
     Route: 065
     Dates: start: 20150930
  20. CALCIUM\CHOLECALCIFEROL [Concomitant]
     Active Substance: CALCIUM\CHOLECALCIFEROL
     Indication: Product used for unknown indication
     Dosage: 2 DF
     Route: 065
     Dates: start: 20091018
  21. CHLORPHENIRAMINE MALEATE [Concomitant]
     Active Substance: CHLORPHENIRAMINE MALEATE
     Indication: Product used for unknown indication
     Dosage: 10 MG
     Route: 065
     Dates: start: 20151111
  22. AMOXICILLIN\CLAVULANATE POTASSIUM [Concomitant]
     Active Substance: AMOXICILLIN\CLAVULANATE POTASSIUM
     Indication: Febrile neutropenia
     Dosage: 625 MG, QID
     Route: 065
     Dates: start: 20151122, end: 20151125
  23. CHOLECALCIFEROL [Concomitant]
     Active Substance: CHOLECALCIFEROL
     Indication: Product used for unknown indication
     Dosage: 2 DF
     Route: 065
  24. DENOSUMAB [Concomitant]
     Active Substance: DENOSUMAB
     Indication: Metastases to bone
     Dosage: 120 MILLIGRAM, QD
     Route: 065
     Dates: start: 20150930
  25. DULOXETINE [Concomitant]
     Active Substance: DULOXETINE
     Indication: Product used for unknown indication
     Dosage: UNKNOWN; ;
     Route: 065
  26. GENTAMICIN [Concomitant]
     Active Substance: GENTAMICIN
     Indication: Febrile neutropenia
     Dosage: UNKNOWN
     Route: 065
     Dates: start: 20151121, end: 201511
  27. LEVOFLOXACIN [Concomitant]
     Active Substance: LEVOFLOXACIN
     Indication: Febrile neutropenia
     Dosage: 500 MILLIGRAM, QD
     Route: 065
     Dates: start: 20151125
  28. MIRTAZAPINE [Concomitant]
     Active Substance: MIRTAZAPINE
     Indication: Product used for unknown indication
     Dosage: 15 MILLIGRAM, QD
     Route: 065
     Dates: start: 201510
  29. MORPHINE [Concomitant]
     Active Substance: MORPHINE
     Indication: Pain
     Dosage: 60 MG;
     Route: 065
     Dates: start: 201509
  30. MORPHINE [Concomitant]
     Active Substance: MORPHINE
     Indication: Pain
     Dosage: MORPHINE;
     Route: 065
     Dates: start: 201509
  31. ORAMORPH SR SUSTAINED RELEASE [Concomitant]
     Active Substance: MORPHINE SULFATE
     Indication: Product used for unknown indication
     Dosage: 10 MG;
     Route: 065
     Dates: start: 201509
  32. ACETAMINOPHEN [Concomitant]
     Active Substance: ACETAMINOPHEN
     Indication: Pain
     Dosage: 500 MG;
     Route: 065
     Dates: start: 20150127
  33. PREGABALIN [Concomitant]
     Active Substance: PREGABALIN
     Indication: Product used for unknown indication
     Dosage: 150 MILLIGRAM, QD;
     Route: 065
     Dates: start: 201509
  34. RANITIDINE [Concomitant]
     Active Substance: RANITIDINE
     Indication: Gastrooesophageal reflux disease
     Dosage: 50 MILLIGRAM, QWK
     Route: 065
     Dates: start: 20151111
  35. TAZOBACTAM SODIUM [Concomitant]
     Active Substance: TAZOBACTAM SODIUM
     Indication: Febrile neutropenia
     Dosage: UNKNOWN; ;
     Route: 065
     Dates: start: 20151121
  36. PIPERACILLIN SODIUM\TAZOBACTAM SODIUM [Concomitant]
     Active Substance: PIPERACILLIN SODIUM\TAZOBACTAM SODIUM
     Indication: Febrile neutropenia
     Dosage: UNKNOWN;
     Route: 065
     Dates: start: 20151121, end: 201511

REACTIONS (31)
  - Schizophrenia [Fatal]
  - Leukopenia [Fatal]
  - Neutropenia [Fatal]
  - Hallucination, auditory [Fatal]
  - Cellulitis [Fatal]
  - Neuropathy peripheral [Fatal]
  - Seizure [Fatal]
  - Delusion of grandeur [Fatal]
  - Affective disorder [Fatal]
  - Psychotic disorder [Fatal]
  - Platelet count decreased [Fatal]
  - Fatigue [Fatal]
  - Lymphocyte count decreased [Fatal]
  - Hospitalisation [Fatal]
  - Neutrophil count increased [Fatal]
  - Off label use [Fatal]
  - Incorrect dose administered [Fatal]
  - Lymphocyte count abnormal [Fatal]
  - Extrapyramidal disorder [Fatal]
  - Alopecia [Fatal]
  - Diarrhoea [Fatal]
  - Disease progression [Fatal]
  - Dyspepsia [Fatal]
  - Mucosal inflammation [Fatal]
  - Nausea [Fatal]
  - Rhinalgia [Fatal]
  - COVID-19 [Fatal]
  - SARS-CoV-2 test positive [Fatal]
  - Incorrect dose administered [Fatal]
  - Neoplasm progression [Fatal]
  - Intentional product misuse [Unknown]

NARRATIVE: CASE EVENT DATE: 20151101
